FAERS Safety Report 7249226-2 (Version None)
Quarter: 2011Q1

REPORT INFORMATION
  Report Type: 
  Country: None (occurrence: None)
  Receive Date: 20110119
  Receipt Date: 20110111
  Transmission Date: 20110831
  Serious: Yes (Hospitalization, Disabling)
  Sender: FDA-Public Use
  Company Number: JPI-P-012183

PATIENT
  Age: 22 Year
  Sex: Female

DRUGS (19)
  1. BUPROPION HCL [Concomitant]
  2. VENLAFAXINE HYDROCHLORIDE [Concomitant]
  3. ZOPICLONE [Concomitant]
  4. XYREM [Suspect]
     Indication: CATAPLEXY
     Dosage: SEE IMAGE: ORAL
     Route: 048
     Dates: start: 20100722, end: 20100804
  5. XYREM [Suspect]
     Indication: SOMNOLENCE
     Dosage: SEE IMAGE: ORAL
     Route: 048
     Dates: start: 20100722, end: 20100804
  6. XYREM [Suspect]
     Indication: POOR QUALITY SLEEP
     Dosage: SEE IMAGE: ORAL
     Route: 048
     Dates: start: 20100722, end: 20100804
  7. XYREM [Suspect]
     Indication: CATAPLEXY
     Dosage: SEE IMAGE: ORAL
     Route: 048
     Dates: start: 20100708, end: 20100721
  8. XYREM [Suspect]
     Indication: SOMNOLENCE
     Dosage: SEE IMAGE: ORAL
     Route: 048
     Dates: start: 20100708, end: 20100721
  9. XYREM [Suspect]
     Indication: POOR QUALITY SLEEP
     Dosage: SEE IMAGE: ORAL
     Route: 048
     Dates: start: 20100708, end: 20100721
  10. XYREM [Suspect]
     Indication: CATAPLEXY
     Dosage: SEE IMAGE: ORAL
     Route: 048
     Dates: start: 20100513, end: 20100707
  11. XYREM [Suspect]
     Indication: SOMNOLENCE
     Dosage: SEE IMAGE: ORAL
     Route: 048
     Dates: start: 20100513, end: 20100707
  12. XYREM [Suspect]
     Indication: POOR QUALITY SLEEP
     Dosage: SEE IMAGE: ORAL
     Route: 048
     Dates: start: 20100513, end: 20100707
  13. XYREM [Suspect]
     Indication: CATAPLEXY
     Dosage: SEE IMAGE: ORAL
     Route: 048
     Dates: start: 20100501, end: 20100512
  14. XYREM [Suspect]
     Indication: SOMNOLENCE
     Dosage: SEE IMAGE: ORAL
     Route: 048
     Dates: start: 20100501, end: 20100512
  15. XYREM [Suspect]
     Indication: POOR QUALITY SLEEP
     Dosage: SEE IMAGE: ORAL
     Route: 048
     Dates: start: 20100501, end: 20100512
  16. XYREM [Suspect]
     Indication: CATAPLEXY
     Dosage: SEE IMAGE: ORAL
     Route: 048
     Dates: start: 20100805, end: 20100822
  17. XYREM [Suspect]
     Indication: SOMNOLENCE
     Dosage: SEE IMAGE: ORAL
     Route: 048
     Dates: start: 20100805, end: 20100822
  18. XYREM [Suspect]
     Indication: POOR QUALITY SLEEP
     Dosage: SEE IMAGE: ORAL
     Route: 048
     Dates: start: 20100805, end: 20100822
  19. METHYLPHENIDATE HCL [Concomitant]

REACTIONS (6)
  - MEMORY IMPAIRMENT [None]
  - NAUSEA [None]
  - DEPRESSION [None]
  - PSYCHOTIC DISORDER [None]
  - AGGRESSION [None]
  - IMPAIRED WORK ABILITY [None]
